FAERS Safety Report 24252510 (Version 1)
Quarter: 2024Q3

REPORT INFORMATION
  Report Type: Spontaneous
  Country: US (occurrence: US)
  Receive Date: 20240827
  Receipt Date: 20240827
  Transmission Date: 20241017
  Serious: No
  Sender: APOTEX
  Company Number: US-APOTEX-2024AP009485

PATIENT
  Age: 30 Year
  Sex: Female

DRUGS (1)
  1. CYCLOSPORINE [Suspect]
     Active Substance: CYCLOSPORINE
     Indication: Small fibre neuropathy
     Dosage: 300 MILLIGRAM
     Route: 048
     Dates: start: 20201215, end: 20210117

REACTIONS (4)
  - Erythromelalgia [Unknown]
  - Pain in extremity [Unknown]
  - Condition aggravated [Unknown]
  - Drug ineffective [Unknown]
